FAERS Safety Report 12038962 (Version 1)
Quarter: 2016Q1

REPORT INFORMATION
  Report Type: Spontaneous
  Country: JP (occurrence: JP)
  Receive Date: 20160208
  Receipt Date: 20160208
  Transmission Date: 20160526
  Serious: Yes (Other)
  Sender: FDA-Public Use
  Company Number: JP-CIPLA LTD.-2016JP00849

PATIENT

DRUGS (6)
  1. GEMCITABINE [Suspect]
     Active Substance: GEMCITABINE\GEMCITABINE HYDROCHLORIDE
     Indication: NEOPLASM MALIGNANT
     Dosage: 1000MG/M2 IN 250 MLOF 5% DEXTROSE SOLUTION, INFUSED OVER 0.5 HOUR ON DAY 1 PER 21 DAY CYCLE
     Route: 042
  2. DEXAMETHASONE. [Concomitant]
     Active Substance: DEXAMETHASONE
     Indication: PROPHYLAXIS OF NAUSEA AND VOMITING
     Route: 065
  3. PACLITAXEL. [Suspect]
     Active Substance: PACLITAXEL
     Indication: NEOPLASM MALIGNANT
     Dosage: 60 MG/M2 IN 250 ML OF SALINE, INFUSED OVER 1 HOUR ON DAY 1 PER 21 DAY CYCLE
     Route: 042
  4. PALONOSETRON HYDROCHLORIDE. [Concomitant]
     Active Substance: PALONOSETRON HYDROCHLORIDE
     Indication: PROPHYLAXIS OF NAUSEA AND VOMITING
     Route: 065
  5. CARBOPLATIN. [Suspect]
     Active Substance: CARBOPLATIN
     Indication: NEOPLASM MALIGNANT
     Dosage: AUC OF 4 IN 250 ML OF SALINE, INFUSED OVER 1 HOUR ON DAY 1 PER 21 DAY CYCLE
     Route: 042
  6. GEMCITABINE [Suspect]
     Active Substance: GEMCITABINE\GEMCITABINE HYDROCHLORIDE
     Dosage: 1000 MG/M2 IN 250 ML OF 5% DEXTROSE SOLUTION ON DAY 8 PER 21 DAY CYCLE
     Route: 042

REACTIONS (1)
  - Disease progression [Unknown]
